FAERS Safety Report 5981407-8 (Version None)
Quarter: 2008Q4

REPORT INFORMATION
  Report Type: 
  Country: None (occurrence: None)
  Receive Date: 20081205
  Receipt Date: 20081127
  Transmission Date: 20090506
  Serious: Yes (Disabling)
  Sender: FDA-Public Use
  Company Number: GB-EISAI MEDICAL RESEARCH-E2020-03573-SPO-GB

PATIENT
  Sex: Female

DRUGS (9)
  1. ARICEPT [Suspect]
     Indication: DEMENTIA ALZHEIMER'S TYPE
     Route: 048
     Dates: start: 20070901
  2. OLANZAPINE [Suspect]
     Indication: SOMNAMBULISM
     Dates: start: 20070901
  3. OMEPRAZOLE [Concomitant]
     Indication: GASTROOESOPHAGEAL REFLUX DISEASE
     Route: 048
  4. ASPIRIN [Concomitant]
     Indication: TRANSIENT ISCHAEMIC ATTACK
     Route: 048
  5. MELOXICAM [Concomitant]
     Indication: OSTEOARTHRITIS
     Route: 048
  6. ALENDRONIC ACID [Concomitant]
     Indication: OSTEOPOROSIS
     Route: 048
  7. CALCIUM [Concomitant]
     Indication: OSTEOPOROSIS
     Route: 048
  8. TRAMACET [Concomitant]
     Indication: ANALGESIA
     Route: 048
  9. VITAMIN D [Concomitant]
     Indication: OSTEOPOROSIS

REACTIONS (3)
  - COGNITIVE DISORDER [None]
  - VISUAL ACUITY REDUCED [None]
  - VISUAL IMPAIRMENT [None]
